FAERS Safety Report 9826465 (Version 1)
Quarter: 2013Q4

REPORT INFORMATION
  Report Type: Spontaneous
  Country: GB (occurrence: None)
  Receive Date: 20131112
  Receipt Date: 20131112
  Transmission Date: 20140711
  Serious: Yes (Other)
  Sender: FDA-Public Use
  Company Number: 2013-00411

PATIENT
  Age: 84 Year
  Sex: Female

DRUGS (2)
  1. LISINOPRIL [Suspect]
     Indication: PRODUCT USED FOR UNKNOWN INDICATION
     Dosage: 1 DOSAGE FORMS, 1 IN 1 D), UNKNOWN
     Dates: start: 2012
  2. OMEPRAZOLE (LOSEC) (UNKNOWN) [Concomitant]

REACTIONS (5)
  - Dysuria [None]
  - Dysuria [None]
  - Fatigue [None]
  - Swelling [None]
  - Discomfort [None]
